FAERS Safety Report 10058886 (Version 3)
Quarter: 2014Q2

REPORT INFORMATION
  Report Type: Spontaneous
  Country: JP (occurrence: JP)
  Receive Date: 20140404
  Receipt Date: 20140408
  Transmission Date: 20141212
  Serious: Yes (Disabling)
  Sender: FDA-Public Use
  Company Number: JP-ASTRAZENECA-2014SE22201

PATIENT
  Age: 51 Year
  Sex: Female

DRUGS (2)
  1. ANAPEINE [Suspect]
     Indication: POSTOPERATIVE ANALGESIA
     Dosage: 2MG/ML
     Route: 008
     Dates: start: 20140312
  2. POPSCAINE [Suspect]
     Indication: POSTOPERATIVE ANALGESIA
     Route: 065
     Dates: start: 20140312

REACTIONS (1)
  - Neuropathy peripheral [Recovered/Resolved]
